FAERS Safety Report 7443066-7 (Version None)
Quarter: 2011Q2

REPORT INFORMATION
  Report Type: 
  Country: None (occurrence: None)
  Receive Date: 20110420
  Receipt Date: 20110415
  Transmission Date: 20111010
  Serious: Yes (Death, Hospitalization)
  Sender: FDA-Public Use
  Company Number: 2011SP017303

PATIENT
  Age: 81 Year
  Sex: Male

DRUGS (1)
  1. INTRON A [Suspect]
     Indication: MYELOPROLIFERATIVE DISORDER
     Dosage: 1.8 MIU; SC
     Route: 058
     Dates: start: 20101101, end: 20110301

REACTIONS (1)
  - NEOPLASM MALIGNANT [None]
